FAERS Safety Report 21360781 (Version 1)
Quarter: 2022Q3

REPORT INFORMATION
  Report Type: Spontaneous
  Country: US (occurrence: US)
  Receive Date: 20220921
  Receipt Date: 20220921
  Transmission Date: 20221027
  Serious: No
  Sender: FDA-Public Use
  Company Number: US-PFIZER INC-202201177114

PATIENT
  Age: 49 Year
  Sex: Female
  Weight: 56.7 kg

DRUGS (2)
  1. FLAGYL [Suspect]
     Active Substance: METRONIDAZOLE\METRONIDAZOLE HYDROCHLORIDE
     Dosage: 250 MG
     Dates: start: 20220915
  2. XIFAXAN [Suspect]
     Active Substance: RIFAXIMIN
     Dosage: 550 MG
     Dates: start: 20220915

REACTIONS (2)
  - Periorbital swelling [Unknown]
  - Headache [Unknown]

NARRATIVE: CASE EVENT DATE: 20220901
